FAERS Safety Report 25764728 (Version 2)
Quarter: 2025Q3

REPORT INFORMATION
  Report Type: Spontaneous
  Country: TR (occurrence: TR)
  Receive Date: 20250905
  Receipt Date: 20250925
  Transmission Date: 20251020
  Serious: Yes (Other)
  Sender: ORGANON
  Company Number: TR-ORGANON-O2509TUR000193

PATIENT
  Sex: Female

DRUGS (2)
  1. NEXPLANON [Suspect]
     Active Substance: ETONOGESTREL
     Route: 059
     Dates: start: 2024, end: 2024
  2. NEXPLANON [Suspect]
     Active Substance: ETONOGESTREL
     Route: 059
     Dates: start: 20240201

REACTIONS (10)
  - Intermenstrual bleeding [Not Recovered/Not Resolved]
  - Quality of life decreased [Not Recovered/Not Resolved]
  - Heavy menstrual bleeding [Recovered/Resolved]
  - Procedural pain [Unknown]
  - Road traffic accident [Unknown]
  - Upper limb fracture [Unknown]
  - Amenorrhoea [Recovered/Resolved]
  - Abdominal distension [Unknown]
  - Complication of device insertion [Recovered/Resolved]
  - Wrong technique in product usage process [Unknown]

NARRATIVE: CASE EVENT DATE: 20240101
